FAERS Safety Report 13362674 (Version 2)
Quarter: 2017Q2

REPORT INFORMATION
  Report Type: Spontaneous
  Country: JP (occurrence: JP)
  Receive Date: 20170323
  Receipt Date: 20170501
  Transmission Date: 20170830
  Serious: Yes (Hospitalization)
  Sender: FDA-Public Use
  Company Number: JP-ELI_LILLY_AND_COMPANY-JP201703005296

PATIENT
  Age: 63 Year
  Sex: Female
  Weight: 56 kg

DRUGS (12)
  1. ABRAXANE [Suspect]
     Active Substance: PACLITAXEL
     Indication: PANCREATIC CARCINOMA STAGE IV
     Dosage: 180 MG, OTHER
     Route: 042
     Dates: start: 20161117, end: 20161124
  2. MAGMITT [Concomitant]
     Active Substance: MAGNESIUM OXIDE
     Indication: CONSTIPATION
     Dosage: 330 UG, TID
     Route: 048
     Dates: start: 20161121
  3. GEMZAR [Suspect]
     Active Substance: GEMCITABINE HYDROCHLORIDE
     Dosage: 1100 MG, OTHER
     Route: 042
     Dates: start: 20161201, end: 20161201
  4. GEMZAR [Suspect]
     Active Substance: GEMCITABINE HYDROCHLORIDE
     Dosage: 1100 MG, OTHER
     Route: 042
     Dates: start: 20170105, end: 20170216
  5. NAIXAN                             /00256201/ [Concomitant]
     Active Substance: NAPROXEN
     Indication: CANCER PAIN
     Dosage: 200 MG, PRN
     Route: 048
     Dates: start: 20161013
  6. ABRAXANE [Suspect]
     Active Substance: PACLITAXEL
     Dosage: 140 MG, OTHER
     Route: 042
     Dates: start: 20161201, end: 20161201
  7. ISODINE [Concomitant]
     Active Substance: POVIDONE-IODINE
     Dosage: UNK
     Route: 048
     Dates: start: 20161121
  8. ABRAXANE [Suspect]
     Active Substance: PACLITAXEL
     Dosage: 140 MG, OTHER
     Route: 042
     Dates: start: 20170105, end: 20170216
  9. GEMZAR [Suspect]
     Active Substance: GEMCITABINE HYDROCHLORIDE
     Dosage: 1100 MG, OTHER
     Route: 042
     Dates: start: 20161215, end: 20161222
  10. CYTOTEC [Concomitant]
     Active Substance: MISOPROSTOL
     Indication: PROPHYLAXIS
     Dosage: 200 MG, PRN
     Route: 048
     Dates: start: 20161013
  11. GEMZAR [Suspect]
     Active Substance: GEMCITABINE HYDROCHLORIDE
     Indication: PANCREATIC CARCINOMA STAGE IV
     Dosage: 1400 MG, OTHER
     Route: 042
     Dates: start: 20161117, end: 20161124
  12. ABRAXANE [Suspect]
     Active Substance: PACLITAXEL
     Dosage: 140 MG, OTHER
     Route: 042
     Dates: start: 20161215, end: 20161222

REACTIONS (2)
  - Interstitial lung disease [Recovering/Resolving]
  - Aspergillus test positive [Unknown]

NARRATIVE: CASE EVENT DATE: 20170227
